FAERS Safety Report 8459387-5 (Version None)
Quarter: 2012Q2

REPORT INFORMATION
  Report Type: 
  Country: None (occurrence: None)
  Receive Date: 20120622
  Receipt Date: 20120616
  Transmission Date: 20120825
  Serious: Yes (Hospitalization, Other)
  Sender: FDA-Public Use
  Company Number: DE-UCBSA-059506

PATIENT
  Age: 11 Month
  Sex: Male
  Weight: 7.5 kg

DRUGS (3)
  1. KEPPRA [Suspect]
     Dosage: 1.1 ML (110 MG) 1-0-1, 100 MG/ML ORAL SOLUTION,VIA STOMACH TUBE
  2. KEPPRA [Suspect]
     Dosage: TOTAL OF 7 ML (700 MG), VIA STOMACH TUBE
     Dates: start: 20120611, end: 20120611
  3. KEPPRA [Suspect]
     Dosage: 1-0-1, VIA STOMACH TUBE

REACTIONS (1)
  - ACCIDENTAL OVERDOSE [None]
